FAERS Safety Report 22620868 (Version 1)
Quarter: 2023Q2

REPORT INFORMATION
  Report Type: Spontaneous
  Country: CA (occurrence: CA)
  Receive Date: 20230620
  Receipt Date: 20230620
  Transmission Date: 20230722
  Serious: Yes (Other)
  Sender: FDA-Public Use
  Company Number: CA-BAYER-2023A086459

PATIENT
  Age: 35 Year
  Sex: Female

DRUGS (2)
  1. GADOBUTROL [Suspect]
     Active Substance: GADOBUTROL
     Indication: Paranasal sinus mass
     Dosage: 5 ML, ONCE
     Route: 042
     Dates: start: 20230606, end: 20230606
  2. GADOBUTROL [Suspect]
     Active Substance: GADOBUTROL
     Indication: Magnetic resonance imaging

REACTIONS (7)
  - Malaise [None]
  - Nausea [None]
  - Chest pain [None]
  - Feeling hot [None]
  - Tremor [None]
  - Muscle spasms [None]
  - Chills [None]

NARRATIVE: CASE EVENT DATE: 20230606
